FAERS Safety Report 23648295 (Version 1)
Quarter: 2024Q1

REPORT INFORMATION
  Report Type: Spontaneous
  Country: US (occurrence: US)
  Receive Date: 20240319
  Receipt Date: 20240319
  Transmission Date: 20240409
  Serious: Yes (Other)
  Sender: FDA-Public Use
  Company Number: US-DRL-USA-LIT/USA/24/0004499

PATIENT
  Age: 20 Year
  Sex: Female

DRUGS (2)
  1. THIOTEPA [Suspect]
     Active Substance: THIOTEPA
     Indication: Prophylaxis
  2. CYCLOPHOSPHAMIDE [Suspect]
     Active Substance: CYCLOPHOSPHAMIDE
     Indication: Prophylaxis

REACTIONS (1)
  - Human polyomavirus infection [Unknown]
